FAERS Safety Report 18990905 (Version 1)
Quarter: 2021Q1

REPORT INFORMATION
  Report Type: Spontaneous
  Country: US (occurrence: US)
  Receive Date: 20210310
  Receipt Date: 20210310
  Transmission Date: 20210420
  Serious: Yes (Other)
  Sender: FDA-Public Use
  Company Number: US-MACLEODS PHARMACEUTICALS US LTD-MAC2021030391

PATIENT

DRUGS (5)
  1. TRAMADOL 50 MG [Suspect]
     Active Substance: TRAMADOL
     Indication: SPINAL PAIN
     Dosage: 50 MILLIGRAM, QID
     Route: 065
  2. OXYCODONE [Concomitant]
     Active Substance: OXYCODONE
     Indication: PRODUCT USED FOR UNKNOWN INDICATION
     Dosage: UNK, VARIABLE DOSES
     Route: 065
  3. IBUPROFEN. [Suspect]
     Active Substance: IBUPROFEN
     Indication: BACK PAIN
  4. TRAMADOL 50 MG [Suspect]
     Active Substance: TRAMADOL
     Indication: CONDITION AGGRAVATED
  5. IBUPROFEN. [Suspect]
     Active Substance: IBUPROFEN
     Indication: NECK PAIN
     Dosage: UNK
     Route: 065

REACTIONS (16)
  - Suicidal ideation [Unknown]
  - Restlessness [Recovered/Resolved]
  - Withdrawal syndrome [Recovered/Resolved]
  - Vomiting [Recovered/Resolved]
  - Drug use disorder [Unknown]
  - Drug abuse [Unknown]
  - Drug dependence [Recovered/Resolved]
  - Pain [Recovered/Resolved]
  - Diarrhoea [Recovered/Resolved]
  - Spinal pain [Unknown]
  - Condition aggravated [Unknown]
  - Nausea [Recovered/Resolved]
  - Anxiety [Recovered/Resolved]
  - Hyperaesthesia [Recovered/Resolved]
  - Mood altered [Unknown]
  - Insomnia [Recovered/Resolved]
